FAERS Safety Report 10205259 (Version 2)
Quarter: 2014Q2

REPORT INFORMATION
  Report Type: Report from Study
  Country: US (occurrence: US)
  Receive Date: 20140529
  Receipt Date: 20140529
  Transmission Date: 20141212
  Serious: Yes (Other)
  Sender: FDA-Public Use
  Company Number: US-JNJFOC-20131204720

PATIENT
  Age: 59 Year
  Sex: Female
  Weight: 83.92 kg

DRUGS (16)
  1. REMICADE [Suspect]
     Indication: PSORIASIS
     Route: 042
     Dates: start: 20140505, end: 20140505
  2. REMICADE [Suspect]
     Indication: PSORIASIS
     Dosage: ALSO REPORTED AS JUN-2013
     Route: 042
     Dates: start: 201307
  3. REMICADE [Suspect]
     Indication: PSORIASIS
     Dosage: 2ND LOADING DOSE
     Route: 042
     Dates: start: 201308, end: 201308
  4. REMICADE [Suspect]
     Indication: PSORIASIS
     Route: 042
     Dates: start: 201403
  5. REMICADE [Suspect]
     Indication: PSORIASIS
     Dosage: 3RD LOADING DOSE
     Route: 042
     Dates: start: 20130906
  6. REMICADE [Suspect]
     Indication: PSORIATIC ARTHROPATHY
     Route: 042
     Dates: start: 201403
  7. REMICADE [Suspect]
     Indication: PSORIATIC ARTHROPATHY
     Dosage: ALSO REPORTED AS JUN-2013
     Route: 042
     Dates: start: 201307
  8. REMICADE [Suspect]
     Indication: PSORIATIC ARTHROPATHY
     Dosage: 3RD LOADING DOSE
     Route: 042
     Dates: start: 20130906
  9. REMICADE [Suspect]
     Indication: PSORIATIC ARTHROPATHY
     Dosage: 2ND LOADING DOSE
     Route: 042
     Dates: start: 201308, end: 201308
  10. REMICADE [Suspect]
     Indication: PSORIATIC ARTHROPATHY
     Route: 042
     Dates: start: 20140505, end: 20140505
  11. FENTANYL PATCH [Suspect]
     Indication: PAIN
     Route: 062
     Dates: start: 201402, end: 2014
  12. PROMETHAZINE [Suspect]
     Indication: PRODUCT USED FOR UNKNOWN INDICATION
     Route: 065
  13. TYLENOL [Concomitant]
     Indication: PREMEDICATION
     Route: 065
     Dates: start: 20140505
  14. BENADRYL [Concomitant]
     Indication: PREMEDICATION
     Route: 065
     Dates: start: 20140505
  15. LEXAPRO [Concomitant]
     Indication: ANXIETY
     Route: 048
  16. OXYCODONE [Concomitant]
     Indication: PAIN
     Route: 065
     Dates: start: 20131203, end: 201402

REACTIONS (18)
  - Restless legs syndrome [Unknown]
  - Scar pain [Not Recovered/Not Resolved]
  - Arthralgia [Unknown]
  - Knee operation [Unknown]
  - Peripheral swelling [Unknown]
  - Arthropathy [Not Recovered/Not Resolved]
  - Shock [Recovered/Resolved]
  - Infusion related reaction [Recovered/Resolved]
  - Arthralgia [Not Recovered/Not Resolved]
  - Pain [Recovered/Resolved]
  - Vision blurred [Recovered/Resolved]
  - Hypovitaminosis [Unknown]
  - Dyspnoea [Recovered/Resolved]
  - Vomiting [Recovered/Resolved]
  - Nausea [Recovered/Resolved]
  - Somnolence [Recovered/Resolved]
  - Back pain [Unknown]
  - Pain in extremity [Unknown]
